FAERS Safety Report 24646800 (Version 4)
Quarter: 2024Q4

REPORT INFORMATION
  Report Type: Spontaneous
  Country: JP (occurrence: JP)
  Receive Date: 20241121
  Receipt Date: 20241231
  Transmission Date: 20250114
  Serious: Yes (Death, Hospitalization, Other)
  Sender: MERCK
  Company Number: JP-MSD-M2024-41364

PATIENT
  Age: 63 Year
  Sex: Male

DRUGS (3)
  1. KEYTRUDA [Suspect]
     Active Substance: PEMBROLIZUMAB
     Indication: Cholangiocarcinoma
     Dosage: 200 MILLIGRAM, Q3W
     Route: 041
     Dates: start: 20240729, end: 20240905
  2. GEMCITABINE HYDROCHLORIDE [Suspect]
     Active Substance: GEMCITABINE HYDROCHLORIDE
     Indication: Cholangiocarcinoma
     Dosage: 1000 MILLIGRAM/SQ. METER, Q3W
     Route: 041
     Dates: start: 20240729, end: 20240905
  3. CISPLATIN [Suspect]
     Active Substance: CISPLATIN
     Indication: Cholangiocarcinoma
     Dosage: 25 MILLIGRAM/SQ. METER, Q3W
     Route: 041
     Dates: start: 20240729, end: 20240905

REACTIONS (1)
  - Cytokine release syndrome [Fatal]

NARRATIVE: CASE EVENT DATE: 20241009
